FAERS Safety Report 5555678-6 (Version None)
Quarter: 2007Q4

REPORT INFORMATION
  Report Type: 
  Country: None (occurrence: None)
  Receive Date: 20071213
  Receipt Date: 20070827
  Transmission Date: 20080405
  Serious: No
  Sender: FDA-Public Use
  Company Number: US-AMGEN-KDL239418

PATIENT
  Sex: Female
  Weight: 60.4 kg

DRUGS (4)
  1. ENBREL [Suspect]
     Indication: RHEUMATOID ARTHRITIS
     Route: 058
     Dates: start: 20001201
  2. METHOTREXATE [Concomitant]
  3. FOLIC ACID [Concomitant]
  4. FISH OIL [Concomitant]

REACTIONS (1)
  - NAIL TINEA [None]
